FAERS Safety Report 10205450 (Version 1)
Quarter: 2014Q2

REPORT INFORMATION
  Report Type: Spontaneous
  Country: FR (occurrence: FR)
  Receive Date: 20140529
  Receipt Date: 20140529
  Transmission Date: 20141212
  Serious: Yes (Hospitalization, Other)
  Sender: FDA-Public Use
  Company Number: FR-ASTRAZENECA-2014SE36062

PATIENT
  Age: 32126 Day
  Sex: Male

DRUGS (12)
  1. CRESTOR [Suspect]
     Indication: DYSLIPIDAEMIA
     Route: 048
  2. PREVISCAN [Suspect]
     Indication: ATRIAL FIBRILLATION
     Route: 048
     Dates: start: 20130425, end: 20140207
  3. KARDEGIC [Suspect]
     Indication: MYOCARDIAL ISCHAEMIA
     Route: 048
     Dates: end: 20140214
  4. LEVOTHYROX [Suspect]
     Indication: HYPOTHYROIDISM
     Route: 048
  5. IKOREL [Concomitant]
     Indication: ANGINA PECTORIS
     Route: 048
     Dates: end: 20140211
  6. TRIATEC [Concomitant]
     Indication: MYOCARDIAL ISCHAEMIA
     Route: 048
     Dates: end: 20140217
  7. FUROSEMIDE [Concomitant]
  8. CARDENSIEL [Concomitant]
  9. RAMIPRIL [Concomitant]
     Route: 048
  10. NITRIDERM [Concomitant]
     Dosage: 10
  11. IMOVANE [Concomitant]
     Route: 048
  12. LEXOMIL [Concomitant]

REACTIONS (6)
  - Anaemia [Not Recovered/Not Resolved]
  - Folate deficiency [Unknown]
  - Vitamin B12 deficiency [Unknown]
  - Serum ferritin decreased [Unknown]
  - N-terminal prohormone brain natriuretic peptide increased [Unknown]
  - Inguinal hernia [Unknown]
